FAERS Safety Report 18903095 (Version 1)
Quarter: 2021Q1

REPORT INFORMATION
  Report Type: Spontaneous
  Country: CN (occurrence: CN)
  Receive Date: 20210216
  Receipt Date: 20210216
  Transmission Date: 20210420
  Serious: Yes (Other)
  Sender: FDA-Public Use
  Company Number: CN-BAXTER-2021BAX003140

PATIENT
  Age: 13 Year
  Sex: Male
  Weight: 68.5 kg

DRUGS (5)
  1. MERCAPTOPURINE. [Suspect]
     Active Substance: MERCAPTOPURINE
     Indication: ACUTE LYMPHOCYTIC LEUKAEMIA
     Dosage: CAM CHEMOTHERAPY, TABLETS
     Route: 048
     Dates: start: 20210118, end: 20210121
  2. 5% GLUCOSE AND 0.9% SODIUM CHLORIDE INJECTION [Suspect]
     Active Substance: DEXTROSE\SODIUM CHLORIDE
     Dosage: CAM CHEMOTHERAPY, SAIDESA 1.7G + (4:1) GLUCOSE AND SODIUM CHLORIDE 250ML
     Route: 041
     Dates: start: 20210118, end: 20210120
  3. 5% GLUCOSE AND 0.9% SODIUM CHLORIDE INJECTION [Suspect]
     Active Substance: DEXTROSE\SODIUM CHLORIDE
     Indication: MEDICATION DILUTION
     Dosage: CAM CHEMOTHERAPY, CYCLOPHOSPHAMIDE 1.7G + (4:1) GLUCOSE AND SODIUM CHLORIDE 250ML
     Route: 041
     Dates: start: 20210118, end: 20210118
  4. SAIDESA (CYTARABINE) [Suspect]
     Active Substance: CYTARABINE
     Indication: ACUTE LYMPHOCYTIC LEUKAEMIA
     Dosage: CAM CHEMOTHERAPY, SAIDESA 1.7G + (4:1) GLUCOSE AND SODIUM CHLORIDE 250ML
     Route: 041
     Dates: start: 20210118, end: 20210120
  5. ENDOXAN [Suspect]
     Active Substance: CYCLOPHOSPHAMIDE
     Indication: ACUTE LYMPHOCYTIC LEUKAEMIA
     Dosage: CAM CHEMOTHERAPY, CYCLOPHOSPHAMIDE 1.7G + (4:1) GLUCOSE AND SODIUM CHLORIDE 250ML
     Route: 041
     Dates: start: 20210118, end: 20210118

REACTIONS (1)
  - Myelosuppression [Recovering/Resolving]

NARRATIVE: CASE EVENT DATE: 20210127
